FAERS Safety Report 6631248-3 (Version None)
Quarter: 2010Q1

REPORT INFORMATION
  Report Type: 
  Country: None (occurrence: None)
  Receive Date: 20100312
  Receipt Date: 20100302
  Transmission Date: 20100710
  Serious: Yes (Hospitalization, Other)
  Sender: FDA-Public Use
  Company Number: ES-BAYER-200939163GPV

PATIENT
  Age: 24 Year
  Sex: Female

DRUGS (2)
  1. YAZ [Suspect]
     Indication: ACNE
     Route: 048
     Dates: start: 20091017, end: 20091029
  2. ALLI [Concomitant]
     Indication: WEIGHT DECREASED
     Dates: start: 20090101

REACTIONS (5)
  - ARTERY DISSECTION [None]
  - CEREBRAL INFARCTION [None]
  - DYSARTHRIA [None]
  - HEMIPLEGIA [None]
  - MONOPARESIS [None]
